FAERS Safety Report 6712537-0 (Version None)
Quarter: 2010Q2

REPORT INFORMATION
  Report Type: 
  Country: None (occurrence: None)
  Receive Date: 20100506
  Receipt Date: 20100423
  Transmission Date: 20101027
  Serious: Yes (Other)
  Sender: FDA-Public Use
  Company Number: US-BAYER-200928630NA

PATIENT
  Age: 49 Year
  Sex: Female
  Weight: 104 kg

DRUGS (12)
  1. YAZ [Suspect]
     Indication: PREMENSTRUAL SYNDROME
     Dosage: 1 DF
     Route: 048
     Dates: start: 20090501, end: 20090623
  2. UNKNOWN ANTIBIOTICS [Concomitant]
  3. SINGULAIR [Concomitant]
     Indication: MULTIPLE ALLERGIES
     Dates: start: 20070101
  4. ADVAIR DISKUS 100/50 [Concomitant]
     Indication: ASTHMA
     Dates: start: 20070101
  5. ASPIRIN [Concomitant]
  6. PROMETRIUM [Concomitant]
     Indication: MENSTRUAL DISORDER
     Dates: start: 20090424
  7. MEGACE [Concomitant]
     Indication: MENSTRUAL DISORDER
     Dosage: INTERMITTENT
     Dates: start: 20081201, end: 20090401
  8. PHENTERMINE [Concomitant]
     Dates: start: 20090401
  9. BENADRYL [Concomitant]
  10. ALBUTEROL [Concomitant]
  11. SEPTRA [Concomitant]
     Indication: CELLULITIS
  12. AUGMENTIN '125' [Concomitant]
     Indication: CELLULITIS

REACTIONS (4)
  - DEEP VEIN THROMBOSIS [None]
  - LIMB DISCOMFORT [None]
  - OEDEMA PERIPHERAL [None]
  - PAIN IN EXTREMITY [None]
